FAERS Safety Report 14383924 (Version 2)
Quarter: 2018Q2

REPORT INFORMATION
  Report Type: Spontaneous
  Country: US (occurrence: US)
  Receive Date: 20180115
  Receipt Date: 20180626
  Transmission Date: 20180711
  Serious: Yes (Other)
  Sender: FDA-Public Use
  Company Number: US-ASTRAZENECA-2018SE03974

PATIENT
  Age: 70 Year
  Sex: Female
  Weight: 72.6 kg

DRUGS (26)
  1. COLACE [Concomitant]
     Active Substance: DOCUSATE SODIUM
     Dates: start: 20140210
  2. PROAIR HFA [Concomitant]
     Active Substance: ALBUTEROL SULFATE
     Dates: start: 20140210
  3. NEXIUM [Suspect]
     Active Substance: ESOMEPRAZOLE MAGNESIUM
     Indication: GASTROOESOPHAGEAL REFLUX DISEASE
     Route: 048
     Dates: start: 2007, end: 2017
  4. NEXIUM [Suspect]
     Active Substance: ESOMEPRAZOLE MAGNESIUM
     Indication: GASTROOESOPHAGEAL REFLUX DISEASE
     Route: 048
     Dates: start: 2011
  5. LABETALOL [Concomitant]
     Active Substance: LABETALOL\LABETALOL HYDROCHLORIDE
     Dates: start: 20140210
  6. NEXIUM [Suspect]
     Active Substance: ESOMEPRAZOLE MAGNESIUM
     Indication: ABDOMINAL DISCOMFORT
     Route: 048
     Dates: start: 2011
  7. COLCHICINE. [Concomitant]
     Active Substance: COLCHICINE
     Dates: start: 20140210
  8. CLONIDINE. [Concomitant]
     Active Substance: CLONIDINE
     Dates: start: 20140210
  9. ZETIA [Concomitant]
     Active Substance: EZETIMIBE
     Dates: start: 20140210
  10. FLONASE [Concomitant]
     Active Substance: FLUTICASONE PROPIONATE
     Dates: start: 20140210
  11. NEXIUM [Suspect]
     Active Substance: ESOMEPRAZOLE MAGNESIUM
     Indication: ABDOMINAL DISCOMFORT
     Route: 048
     Dates: start: 2007, end: 2017
  12. PLAVIX [Concomitant]
     Active Substance: CLOPIDOGREL BISULFATE
     Dates: start: 20140210
  13. SUCRALFATE. [Concomitant]
     Active Substance: SUCRALFATE
     Dates: start: 20140210
  14. ACETOMINOPHEN-COD [Concomitant]
     Indication: ANALGESIC THERAPY
     Dates: start: 201210, end: 201211
  15. SPIRIVA [Concomitant]
     Active Substance: TIOTROPIUM BROMIDE MONOHYDRATE
     Dates: start: 20140210
  16. LACTULOSE. [Concomitant]
     Active Substance: LACTULOSE
     Dates: start: 20140210
  17. EDARBI [Concomitant]
     Active Substance: AZILSARTAN KAMEDOXOMIL
     Dates: start: 20140210
  18. URSO [Concomitant]
     Active Substance: URSODIOL
     Dates: start: 20140210
  19. INSULIN [Concomitant]
     Active Substance: INSULIN NOS
     Dates: start: 20140210
  20. AMLODIPINE [Concomitant]
     Active Substance: AMLODIPINE BESYLATE
     Dates: start: 20140210
  21. ROCALTROL [Concomitant]
     Active Substance: CALCITRIOL
     Dates: start: 20140210
  22. VITAMIN D [Concomitant]
     Active Substance: CHOLECALCIFEROL
     Dates: start: 20140210
  23. NEXIUM [Suspect]
     Active Substance: ESOMEPRAZOLE MAGNESIUM
     Indication: GASTROOESOPHAGEAL REFLUX DISEASE
     Dates: start: 20090629, end: 201709
  24. NEXIUM [Suspect]
     Active Substance: ESOMEPRAZOLE MAGNESIUM
     Indication: ABDOMINAL DISCOMFORT
     Dates: start: 20090629, end: 201709
  25. IMURAN [Concomitant]
     Active Substance: AZATHIOPRINE
     Dates: start: 20140210
  26. FUROSEMIDE. [Concomitant]
     Active Substance: FUROSEMIDE

REACTIONS (3)
  - End stage renal disease [Unknown]
  - Chronic kidney disease [Unknown]
  - Renal injury [Unknown]

NARRATIVE: CASE EVENT DATE: 2005
